FAERS Safety Report 7725789-5 (Version None)
Quarter: 2011Q3

REPORT INFORMATION
  Report Type: 
  Country: None (occurrence: None)
  Receive Date: 20110902
  Receipt Date: 20110824
  Transmission Date: 20111222
  Serious: Yes (Death, Hospitalization)
  Sender: FDA-Public Use
  Company Number: GB-BRISTOL-MYERS SQUIBB COMPANY-16008179

PATIENT
  Age: 63 Year
  Sex: Female

DRUGS (12)
  1. ASPIRIN [Concomitant]
  2. LAMOTRIGINE [Concomitant]
  3. COMBIVIR [Suspect]
     Indication: HIV INFECTION
     Dates: start: 20051201
  4. CALCICHEW [Concomitant]
  5. MARAVIROC [Concomitant]
  6. PRAVASTATIN [Concomitant]
  7. FERROUS SULFATE TAB [Concomitant]
  8. RITONAVIR [Suspect]
     Indication: HIV INFECTION
  9. METFORMIN HCL [Concomitant]
  10. REYATAZ [Suspect]
     Indication: HIV INFECTION
  11. NEVIRAPINE [Suspect]
     Indication: HIV INFECTION
     Dates: start: 20051201
  12. RALTEGRAVIR [Concomitant]

REACTIONS (1)
  - HEPATIC STEATOSIS [None]
